FAERS Safety Report 14848951 (Version 1)
Quarter: 2018Q2

REPORT INFORMATION
  Report Type: Spontaneous
  Country: US (occurrence: US)
  Receive Date: 20180504
  Receipt Date: 20180504
  Transmission Date: 20180711
  Serious: Yes (Other)
  Sender: FDA-Public Use
  Company Number: US-PRINSTON PHARMACEUTICAL INC.-2018PRN00220

PATIENT
  Sex: Female

DRUGS (2)
  1. RISPERIDONE. [Suspect]
     Active Substance: RISPERIDONE
     Dosage: UNK
     Dates: start: 2018, end: 2018
  2. RISPERIDONE (MYLAN) [Suspect]
     Active Substance: RISPERIDONE
     Dosage: UNK, AS NEEDED

REACTIONS (12)
  - Drug ineffective [Recovering/Resolving]
  - Aggression [Recovering/Resolving]
  - Mania [Recovering/Resolving]
  - Hypomania [Recovering/Resolving]
  - Nightmare [Recovering/Resolving]
  - Affect lability [Recovering/Resolving]
  - Homicidal ideation [Recovering/Resolving]
  - Screaming [Recovering/Resolving]
  - Product substitution issue [Recovering/Resolving]
  - Insomnia [Recovering/Resolving]
  - Suicidal ideation [Recovering/Resolving]
  - Irritability [Recovering/Resolving]

NARRATIVE: CASE EVENT DATE: 2018
